FAERS Safety Report 15590440 (Version 8)
Quarter: 2020Q1

REPORT INFORMATION
  Report Type: Spontaneous
  Country: DE (occurrence: DE)
  Receive Date: 20181106
  Receipt Date: 20200103
  Transmission Date: 20200409
  Serious: Yes (Other)
  Sender: FDA-Public Use
  Company Number: DE-PFIZER INC-2018455288

PATIENT
  Age: 81 Year
  Sex: Male

DRUGS (34)
  1. TORASEMIDE [Suspect]
     Active Substance: TORSEMIDE
     Dosage: 20 MG, 1X/DAY(QD 1-1-0 )
     Dates: start: 2012
  2. LANTUS [Suspect]
     Active Substance: INSULIN GLARGINE
     Dosage: 20 IU, 1X/DAY
     Dates: start: 2014
  3. VALSACOR [Suspect]
     Active Substance: VALSARTAN
     Dosage: UNK
     Dates: start: 20180903, end: 20181009
  4. SIMVASTATIN. [Suspect]
     Active Substance: SIMVASTATIN
     Dosage: 40 MG, 1X/DAY IN THE EVENING
     Dates: start: 2014
  5. NOVAMINSULFON [Suspect]
     Active Substance: METAMIZOLE
     Dosage: UNK(IF NEEDED 2-3 TIMES DAILY 20-30 DROPS)
     Dates: start: 2014
  6. CANDESARTAN [CANDESARTAN CILEXETIL] [Suspect]
     Active Substance: CANDESARTAN CILEXETIL
     Dosage: 16 MG, 1X/DAY
     Dates: start: 20181009
  7. TORASEMIDE [Suspect]
     Active Substance: TORSEMIDE
     Dosage: 20 MG, UNK
     Dates: start: 2012
  8. TORASEMIDE [Suspect]
     Active Substance: TORSEMIDE
     Dosage: 20 MG, UNK
     Dates: start: 2014
  9. LANTUS [Suspect]
     Active Substance: INSULIN GLARGINE
     Dosage: 24 IU, 1X/DAY
     Dates: start: 2018
  10. NOVORAPID [Suspect]
     Active Substance: INSULIN ASPART
     Dosage: UNK UNK, TID
  11. ALLOPURINOL. [Suspect]
     Active Substance: ALLOPURINOL
     Dosage: 100 MG, 1X/DAY
     Dates: start: 2018
  12. TAMSULOSIN [Suspect]
     Active Substance: TAMSULOSIN
     Dosage: 0.4 MG, 1X/DAY
     Dates: start: 2014
  13. NOVORAPID [Suspect]
     Active Substance: INSULIN ASPART
     Dosage: UNK
     Dates: start: 2014
  14. NOVORAPID [Suspect]
     Active Substance: INSULIN ASPART
     Dosage: UNK UNK, TID
  15. VALSACOR [Suspect]
     Active Substance: VALSARTAN
     Dosage: 160 MG, 1X/DAY
     Dates: start: 2014
  16. CANDESARTAN ZENTIVA [Concomitant]
     Active Substance: CANDESARTAN CILEXETIL
     Dosage: UNK
  17. TORASEMIDE [Suspect]
     Active Substance: TORSEMIDE
     Dosage: 20 MG, UNK
  18. NOVORAPID [Suspect]
     Active Substance: INSULIN ASPART
     Dosage: UNK
  19. CALCITRIOL. [Concomitant]
     Active Substance: CALCITRIOL
     Dosage: 0.25 MG, 1X/DAY
     Dates: start: 2014
  20. PANTOPRAZOLE [Suspect]
     Active Substance: PANTOPRAZOLE
     Indication: PROPHYLAXIS AGAINST GASTROINTESTINAL ULCER
     Dosage: 40 MG, 1X/DAY (IN THE MORNING)
     Dates: start: 2018
  21. AMLODIPINE BESILATE [Suspect]
     Active Substance: AMLODIPINE BESYLATE
     Dosage: 5 MG, 1X/DAY(ADMINISTRATION IN THE EVENING)
     Dates: start: 2018
  22. AMLODIPINE BESILATE [Suspect]
     Active Substance: AMLODIPINE BESYLATE
     Dosage: 5 MG, 1X/DAY
  23. TORASEMIDE [Suspect]
     Active Substance: TORSEMIDE
     Dosage: 40 MG, 1X/DAY(ADMINISTRATION AS NEEDED 20 IN THE MORNING, 20 AT NOON)
     Dates: start: 2014
  24. NOVORAPID [Suspect]
     Active Substance: INSULIN ASPART
     Dosage: UNK(IN THE MORNING, AT NOON AND IN THE EVENING BETWEEN 8 AND 40 IU PER TIME ACCORDING TO HIS/HER OWN
     Dates: start: 2012
  25. NOVORAPID [Suspect]
     Active Substance: INSULIN ASPART
     Dosage: UNK(ADMINISTRATION IN THE MORNING 24, AT NOON 18 AND IN THE EVENING 20)
     Dates: start: 2018
  26. VALSARTAN HEXAL [Suspect]
     Active Substance: VALSARTAN
     Dosage: 160 MG, 1X/DAY
     Dates: start: 2014
  27. AMLODIPINE BESILATE [Suspect]
     Active Substance: AMLODIPINE BESYLATE
     Dosage: 5 MG, 2X/DAY (ADMINISTRATION IN THE MORNING AND EVENING)
     Dates: start: 2014
  28. AMLODIPINE BESILATE [Suspect]
     Active Substance: AMLODIPINE BESYLATE
     Dosage: 5 MG, 1X/DAY
     Dates: start: 2014
  29. ASS 100 [Suspect]
     Active Substance: ASPIRIN
     Dosage: 100 MG, 1X/DAY
     Dates: start: 2014
  30. NOVORAPID [Suspect]
     Active Substance: INSULIN ASPART
     Dosage: 24 IN THE MORNING, 18 AT NOON AND 20 IN THE EVENING
  31. NOVORAPID [Suspect]
     Active Substance: INSULIN ASPART
     Dosage: DOSE BETWEEN 8 AND 40 IU PER TIME BEFORE EATING THRICE DAILY; UNKNOWN
     Dates: start: 2014
  32. ALLOPURINOL. [Suspect]
     Active Substance: ALLOPURINOL
     Dosage: 300 MG, 1X/DAY
     Dates: start: 2014
  33. METAMIZOLE SODIUM [Suspect]
     Active Substance: METAMIZOLE SODIUM
     Dosage: UNK
     Dates: start: 2014
  34. ENALAPRIL [Concomitant]
     Active Substance: ENALAPRIL
     Dosage: UNK

REACTIONS (16)
  - Dyspnoea exertional [Unknown]
  - Nausea [Unknown]
  - Proctalgia [Unknown]
  - Blood glucose increased [Unknown]
  - Morning sickness [Unknown]
  - Peripheral swelling [Unknown]
  - Myalgia [Unknown]
  - Chest discomfort [Unknown]
  - Skin haemorrhage [Recovered/Resolved]
  - Injection site swelling [Unknown]
  - Muscle spasms [Unknown]
  - Spinal pain [Unknown]
  - Asthenia [Unknown]
  - Rectal tenesmus [Unknown]
  - Dyspnoea [Unknown]
  - Pelvic pain [Unknown]

NARRATIVE: CASE EVENT DATE: 201809
